FAERS Safety Report 25658077 (Version 2)
Quarter: 2025Q3

REPORT INFORMATION
  Report Type: Spontaneous
  Country: EU (occurrence: EU)
  Receive Date: 20250808
  Receipt Date: 20250814
  Transmission Date: 20251020
  Serious: Yes (Other)
  Sender: ALKEM
  Company Number: None

PATIENT
  Age: 53 Year
  Sex: Male

DRUGS (5)
  1. DRONABINOL [Suspect]
     Active Substance: DRONABINOL
     Indication: Headache
     Dosage: 2.5 MILLIGRAM, QID (SOFT CAPSULE (DRONABINOL), 4 DOSAGE FORM)
     Route: 048
     Dates: start: 20201019, end: 20241112
  2. DRONABINOL [Suspect]
     Active Substance: DRONABINOL
     Indication: Neuralgia
  3. Aspirine Protect 100 [Concomitant]
     Indication: Thromboangiitis obliterans
     Route: 065
  4. EZETIMIBE [Concomitant]
     Active Substance: EZETIMIBE
     Indication: Product used for unknown indication
     Route: 065
  5. Tahor 80 [Concomitant]
     Indication: Product used for unknown indication
     Route: 065

REACTIONS (1)
  - Ischaemic stroke [Recovering/Resolving]

NARRATIVE: CASE EVENT DATE: 20241031
